FAERS Safety Report 25011532 (Version 1)
Quarter: 2025Q1

REPORT INFORMATION
  Report Type: Spontaneous
  Country: US (occurrence: US)
  Receive Date: 20250226
  Receipt Date: 20250226
  Transmission Date: 20250408
  Serious: No
  Sender: BIOGEN
  Company Number: US-BIOGEN-2016BI00255255

PATIENT
  Age: 48 Year
  Sex: Female

DRUGS (2)
  1. TECFIDERA [Suspect]
     Active Substance: DIMETHYL FUMARATE
     Indication: Multiple sclerosis
     Route: 050
     Dates: start: 20160505, end: 20200615
  2. TECFIDERA [Suspect]
     Active Substance: DIMETHYL FUMARATE
     Route: 050
     Dates: start: 2016, end: 202009

REACTIONS (8)
  - Product storage error [Unknown]
  - Gastrointestinal disorder [Unknown]
  - Sensory disturbance [Unknown]
  - Skin laceration [Unknown]
  - Haemorrhage [Unknown]
  - Flushing [Not Recovered/Not Resolved]
  - Pruritus [Unknown]
  - Abdominal pain upper [Unknown]

NARRATIVE: CASE EVENT DATE: 20200801
